FAERS Safety Report 8671937 (Version 4)
Quarter: 2013Q3

REPORT INFORMATION
  Report Type: Report from Study
  Country: JP (occurrence: JP)
  Receive Date: 20120718
  Receipt Date: 20130701
  Transmission Date: 20140515
  Serious: Yes (Other)
  Sender: FDA-Public Use
  Company Number: JP-GILEAD-2012-0058134

PATIENT
  Age: 82 Year
  Sex: Female

DRUGS (8)
  1. AMBRISENTAN [Suspect]
     Indication: PULMONARY ARTERIAL HYPERTENSION
     Dosage: 2.5 MG, QD
     Route: 048
     Dates: start: 20120606, end: 20120709
  2. AMBRISENTAN [Suspect]
     Dosage: 1.25 MG, QD
     Route: 048
     Dates: start: 20120605, end: 20120605
  3. DIART [Suspect]
     Indication: CARDIAC FAILURE
     Dosage: 30MG PER DAY
     Route: 048
     Dates: start: 20120623, end: 20120705
  4. WARFARIN [Concomitant]
     Route: 048
  5. BAYASPIRIN [Concomitant]
     Indication: ANGINA PECTORIS
     Dosage: 100MG PER DAY
     Route: 048
  6. BAYASPIRIN [Concomitant]
     Dosage: 100MG PER DAY
     Route: 048
  7. PLAVIX [Concomitant]
     Indication: ANGINA PECTORIS
     Dosage: 75MG PER DAY
     Route: 048
  8. PARIET [Concomitant]
     Indication: GASTROOESOPHAGEAL REFLUX DISEASE
     Dosage: 10MG PER DAY
     Route: 048

REACTIONS (1)
  - Hepatic function abnormal [Recovering/Resolving]
